FAERS Safety Report 8962500 (Version 1)
Quarter: 2012Q4

REPORT INFORMATION
  Report Type: Spontaneous
  Country: US (occurrence: None)
  Receive Date: 20121205
  Receipt Date: 20121205
  Transmission Date: 20130627
  Serious: Yes (Hospitalization)
  Sender: FDA-Public Use
  Company Number: DKLU1086259

PATIENT
  Age: 37 Year
  Sex: Male

DRUGS (4)
  1. SABRIL (TABLET) (SABRIL) (VIGABATRIN) (500 MG, TABLET) [Suspect]
     Indication: COMPLEX PARTIAL SEIZURES
     Dosage: 1500 mg milligram(s), 2 in 1 D, Oral
     Route: 048
     Dates: start: 20121017
  2. SABRIL (TABLET) (SABRIL) (VIGABATRIN) (500 MG, TABLET) [Suspect]
     Indication: COMPLEX PARTIAL SEIZURES
     Dosage: 1000 mg milligram(s), 2 in 1 D, Oral
     Route: 048
  3. LAMOTRIGINE (LAMOTRIGINE) [Concomitant]
  4. TOPAMAX (TOPAMAX) [Concomitant]

REACTIONS (2)
  - Convulsion [None]
  - Mental status changes [None]
